FAERS Safety Report 17214462 (Version 1)
Quarter: 2019Q4

REPORT INFORMATION
  Report Type: Spontaneous
  Country: US (occurrence: US)
  Receive Date: 20191230
  Receipt Date: 20191230
  Transmission Date: 20200122
  Serious: Yes (Hospitalization, Other)
  Sender: FDA-Public Use
  Company Number: US-ALEXION PHARMACEUTICALS INC.-A201919835

PATIENT
  Sex: Male

DRUGS (1)
  1. SOLIRIS [Suspect]
     Active Substance: ECULIZUMAB
     Indication: ATYPICAL HAEMOLYTIC URAEMIC SYNDROME
     Dosage: UNK
     Route: 065

REACTIONS (7)
  - Ill-defined disorder [Unknown]
  - Haemolysis [Unknown]
  - Physical assault [Unknown]
  - Thrombocytopenia [Unknown]
  - Post procedural haemorrhage [Unknown]
  - Renal impairment [Unknown]
  - Blood creatinine increased [Unknown]
